FAERS Safety Report 12226561 (Version 1)
Quarter: 2016Q1

REPORT INFORMATION
  Report Type: Spontaneous
  Country: US (occurrence: US)
  Receive Date: 20160331
  Receipt Date: 20160331
  Transmission Date: 20160526
  Serious: Yes (Other)
  Sender: FDA-Public Use
  Company Number: US-ENDO PHARMACEUTICALS INC.-2016-002171

PATIENT
  Age: 40 Year
  Sex: Male

DRUGS (2)
  1. XIAFLEX [Suspect]
     Active Substance: COLLAGENASE CLOSTRIDIUM HISTOLYTICUM
     Indication: PEYRONIE^S DISEASE
     Route: 026
     Dates: start: 20151130, end: 20151203
  2. XIAFLEX [Suspect]
     Active Substance: COLLAGENASE CLOSTRIDIUM HISTOLYTICUM
     Route: 026
     Dates: start: 20160302, end: 20160304

REACTIONS (1)
  - Fracture of penis [Unknown]

NARRATIVE: CASE EVENT DATE: 20160319
